FAERS Safety Report 22966735 (Version 2)
Quarter: 2023Q4

REPORT INFORMATION
  Report Type: Other
  Country: AE (occurrence: None)
  Receive Date: 20230921
  Receipt Date: 20231110
  Transmission Date: 20240109
  Serious: Yes (Death, Hospitalization)
  Sender: FDA-Public Use
  Company Number: AE-ROCHE-3422946

PATIENT
  Age: 31 Year
  Sex: Male

DRUGS (2)
  1. TECENTRIQ [Suspect]
     Active Substance: ATEZOLIZUMAB
     Indication: Hepatocellular carcinoma
     Route: 042
     Dates: start: 20221115
  2. AVASTIN [Suspect]
     Active Substance: BEVACIZUMAB
     Indication: Hepatocellular carcinoma
     Route: 065
     Dates: start: 20221115

REACTIONS (3)
  - Blood glucose decreased [Recovered/Resolved]
  - Gastric infection [Recovered/Resolved]
  - Death [Fatal]

NARRATIVE: CASE EVENT DATE: 20230901
